FAERS Safety Report 8132386-9 (Version None)
Quarter: 2012Q1

REPORT INFORMATION
  Report Type: 
  Country: None (occurrence: None)
  Receive Date: 20120213
  Receipt Date: 20120201
  Transmission Date: 20120608
  Serious: Yes (Other)
  Sender: FDA-Public Use
  Company Number: US-ELI_LILLY_AND_COMPANY-US201201000611

PATIENT
  Age: 72 Year
  Sex: Female

DRUGS (1)
  1. FORTEO [Suspect]
     Indication: OSTEOPOROSIS
     Dosage: UNK

REACTIONS (5)
  - CYST [None]
  - LYMPHOCYTE COUNT INCREASED [None]
  - BLOOD PRESSURE INCREASED [None]
  - CHRONIC LYMPHOCYTIC LEUKAEMIA [None]
  - BLOOD CHOLESTEROL INCREASED [None]
